FAERS Safety Report 14170888 (Version 2)
Quarter: 2017Q4

REPORT INFORMATION
  Report Type: Spontaneous
  Country: US (occurrence: US)
  Receive Date: 20171108
  Receipt Date: 20171205
  Transmission Date: 20180321
  Serious: Yes (Hospitalization, Other)
  Sender: FDA-Public Use
  Company Number: US-DSJP-DSU-2017-139758

PATIENT

DRUGS (2)
  1. BENICAR HCT [Suspect]
     Active Substance: HYDROCHLOROTHIAZIDE\OLMESARTAN MEDOXOMIL
     Indication: HYPERTENSION
     Dosage: 1 DF, QD
     Route: 048
     Dates: start: 20070727, end: 20170609
  2. BENICAR [Suspect]
     Active Substance: OLMESARTAN MEDOXOMIL
     Indication: PRODUCT USED FOR UNKNOWN INDICATION
     Dosage: 40 MG, QD
     Route: 048

REACTIONS (10)
  - Diverticulum intestinal [Unknown]
  - Sprue-like enteropathy [Recovering/Resolving]
  - Gastrooesophageal reflux disease [Unknown]
  - Constipation [Unknown]
  - Haemorrhoids [Unknown]
  - Erosive duodenitis [Unknown]
  - Hiatus hernia [Unknown]
  - Oesophageal stenosis [Unknown]
  - Acute kidney injury [Unknown]
  - Coeliac disease [Recovered/Resolved]

NARRATIVE: CASE EVENT DATE: 20080222
